FAERS Safety Report 10062159 (Version 4)
Quarter: 2014Q2

REPORT INFORMATION
  Report Type: Spontaneous
  Country: NL (occurrence: NL)
  Receive Date: 20140407
  Receipt Date: 20140522
  Transmission Date: 20141212
  Serious: Yes (Other)
  Sender: FDA-Public Use
  Company Number: NL-PFIZER INC-2014092408

PATIENT
  Age: 78 Year
  Sex: Male

DRUGS (9)
  1. LYRICA [Suspect]
     Indication: NERVE COMPRESSION
     Dosage: 75 MG, 2X/DAY
     Dates: start: 201303
  2. LYRICA [Suspect]
     Indication: NEURALGIA
     Dosage: 150 MG, 2X/DAY
     Route: 048
     Dates: start: 20131022, end: 20131210
  3. LYRICA [Suspect]
     Dosage: 75 MG, 4X/DAY
     Dates: end: 20140109
  4. ESOMEPRAZOLE [Concomitant]
     Indication: PROPHYLAXIS
     Dosage: 40 MG, 1X/DAY
     Route: 048
  5. ATORVASTATIN [Concomitant]
     Dosage: 20 MG, 1X/DAY
     Route: 048
  6. LISINOPRIL [Concomitant]
     Dosage: 20 MG, 1X/DAY
     Route: 048
  7. VERAPAMIL [Concomitant]
     Dosage: 240 MG, 1X/DAY
     Route: 048
  8. LANOXIN [Concomitant]
     Dosage: 0.062 DF, 1X/DAY
  9. GLICASIL [Concomitant]
     Dosage: 80 MG, 1X/DAY

REACTIONS (15)
  - Mental impairment [Not Recovered/Not Resolved]
  - Emotional disorder [Not Recovered/Not Resolved]
  - Tremor [Not Recovered/Not Resolved]
  - Peripheral swelling [Not Recovered/Not Resolved]
  - Confusional state [Not Recovered/Not Resolved]
  - Feeling abnormal [Not Recovered/Not Resolved]
  - Dyskinesia [Not Recovered/Not Resolved]
  - Decreased appetite [Not Recovered/Not Resolved]
  - Insomnia [Not Recovered/Not Resolved]
  - Crying [Not Recovered/Not Resolved]
  - Depersonalisation [Not Recovered/Not Resolved]
  - Obsessive thoughts [Not Recovered/Not Resolved]
  - Therapeutic response changed [Not Recovered/Not Resolved]
  - Erection increased [Not Recovered/Not Resolved]
  - Arteriosclerosis [Not Recovered/Not Resolved]
